FAERS Safety Report 10166758 (Version 1)
Quarter: 2014Q2

REPORT INFORMATION
  Report Type: Spontaneous
  Country: US (occurrence: None)
  Receive Date: 20140509
  Receipt Date: 20140509
  Transmission Date: 20141212
  Serious: Yes (Hospitalization)
  Sender: FDA-Public Use
  Company Number: None

PATIENT
  Age: 71 Year
  Sex: Male
  Weight: 82 kg

DRUGS (4)
  1. ALEMTUZUMAB (CAMPATH) [Suspect]
     Dosage: ON WEEKS 1, 5, 9, 13, 17, AND 21
  2. CYCLOPHOSPHAMIDE [Suspect]
  3. PENTOSTATIN [Suspect]
     Route: 042
  4. RITUXIMAB (MOAB C2B8 ANTI CD20, CHIMERIC) [Suspect]
     Dosage: ON WEEKS 1, 5, 9, 13, 17, AND 21
     Route: 042

REACTIONS (2)
  - Pancytopenia [None]
  - Pneumonia [None]
